FAERS Safety Report 9412299 (Version 2)
Quarter: 2013Q4

REPORT INFORMATION
  Report Type: Spontaneous
  Country: US (occurrence: US)
  Receive Date: 20130722
  Receipt Date: 20131007
  Transmission Date: 20140711
  Serious: Yes (Other)
  Sender: FDA-Public Use
  Company Number: US-PFIZER INC-2013212254

PATIENT
  Age: 52 Year
  Sex: Female
  Weight: 90.7 kg

DRUGS (7)
  1. LYRICA [Suspect]
     Indication: FIBROMYALGIA
     Dosage: 50 MG, 2X/DAY
  2. LYRICA [Suspect]
     Indication: BACK PAIN
     Dosage: 75 MG, UNK
  3. LYRICA [Suspect]
     Indication: MUSCULOSKELETAL PAIN
     Dosage: 100 MG, 2X/DAY
  4. LYRICA [Suspect]
     Indication: NECK PAIN
  5. MORPHINE [Concomitant]
     Indication: BACK PAIN
     Dosage: UNK
  6. MORPHINE [Concomitant]
     Indication: MUSCULOSKELETAL PAIN
  7. MORPHINE [Concomitant]
     Indication: NECK PAIN

REACTIONS (5)
  - Cerebrovascular accident [Unknown]
  - Activities of daily living impaired [Unknown]
  - Movement disorder [Unknown]
  - Hypoaesthesia [Unknown]
  - Drug ineffective [Unknown]
